FAERS Safety Report 17912687 (Version 2)
Quarter: 2020Q3

REPORT INFORMATION
  Report Type: Report from Study
  Country: CA (occurrence: CA)
  Receive Date: 20200618
  Receipt Date: 20200710
  Transmission Date: 20201103
  Serious: Yes (Hospitalization, Other)
  Sender: FDA-Public Use
  Company Number: CA-BAYER-2020-040332

PATIENT
  Age: 72 Year
  Sex: Female

DRUGS (2)
  1. ADEMPAS [Suspect]
     Active Substance: RIOCIGUAT
     Indication: PULMONARY ARTERIAL HYPERTENSION
     Dosage: 1.0 MG, TID
     Route: 048
     Dates: start: 20200302
  2. ADEMPAS [Suspect]
     Active Substance: RIOCIGUAT
     Indication: PULMONARY ARTERIAL HYPERTENSION
     Dosage: 2.5 MG, TID
     Dates: start: 20200302

REACTIONS (18)
  - Hypotension [Recovered/Resolved]
  - Laziness [Not Recovered/Not Resolved]
  - Dyspnoea exertional [Recovered/Resolved]
  - Blood pressure decreased [Not Recovered/Not Resolved]
  - Internal haemorrhage [Unknown]
  - Restlessness [None]
  - Dyspnoea exertional [None]
  - International normalised ratio increased [None]
  - Stress [Recovered/Resolved]
  - Hunger [Recovered/Resolved]
  - Gastrointestinal inflammation [None]
  - Nausea [Recovered/Resolved]
  - Dyspnoea [Not Recovered/Not Resolved]
  - Malaise [None]
  - Blood pressure abnormal [Not Recovered/Not Resolved]
  - Weight increased [Unknown]
  - Haemoglobin increased [None]
  - Hypotension [None]

NARRATIVE: CASE EVENT DATE: 202003
